FAERS Safety Report 8867078 (Version 1)
Quarter: 2012Q4

REPORT INFORMATION
  Report Type: 
  Country: US (occurrence: US)
  Receive Date: 20121025
  Receipt Date: 20121025
  Transmission Date: 20130627
  Serious: No
  Sender: FDA-Public Use
  Company Number: US-AMGEN-USASP2012014826

PATIENT
  Age: 61 Year
  Weight: 85.71 kg

DRUGS (8)
  1. ENBREL [Suspect]
     Indication: PRODUCT USED FOR UNKNOWN INDICATION
     Dosage: 50 mg, qwk
  2. SYNTHROID [Concomitant]
     Dosage: 100 mug, UNK
  3. PROZAC [Concomitant]
     Dosage: 10 mg, UNK
  4. VITAMIN E                          /00110501/ [Concomitant]
     Dosage: 400 IU, UNK
  5. VITAMIN C                          /00008001/ [Concomitant]
     Dosage: 500 mg, UNK
  6. VITAMIN D /00107901/ [Concomitant]
  7. PROBIOTIC [Concomitant]
  8. CALCITRENE [Concomitant]
     Dosage: 0.005 %, UNK

REACTIONS (1)
  - Sinusitis [Recovering/Resolving]
